FAERS Safety Report 7724605 (Version 2)
Quarter: 2013Q1

REPORT INFORMATION
  Report Type: Spontaneous
  Country: BR (occurrence: BR)
  Receive Date: 20101221
  Receipt Date: 20130111
  Transmission Date: 20140127
  Serious: Yes (Other)
  Sender: FDA-Public Use
  Company Number: BR-SANOFI-AVENTIS-2010SA075852

PATIENT
  Age: 70 Year
  Sex: Female
  Weight: 67 kg

DRUGS (8)
  1. LANTUS [Suspect]
     Indication: DIABETES MELLITUS
     Route: 058
     Dates: start: 2002
  2. AUTOPEN 24 [Suspect]
     Indication: DEVICE THERAPY
  3. METFORMIN [Concomitant]
     Indication: DIABETES MELLITUS
     Route: 048
  4. DIOVANE [Concomitant]
     Indication: BLOOD PRESSURE
     Route: 048
  5. ALISKIREN [Concomitant]
     Indication: BLOOD PRESSURE
     Route: 048
  6. SOMALGIN [Concomitant]
     Indication: CARDIAC DISORDER
     Route: 048
  7. CLOPIDOGREL [Concomitant]
     Indication: CARDIAC DISORDER
     Route: 048
  8. CILOSTAZOL [Concomitant]
     Indication: CARDIOVASCULAR DISORDER
     Route: 048

REACTIONS (4)
  - Cataract [Recovered/Resolved]
  - Vision blurred [Recovered/Resolved]
  - Fatigue [Recovered/Resolved]
  - Unevaluable event [Unknown]
